FAERS Safety Report 17994931 (Version 1)
Quarter: 2020Q3

REPORT INFORMATION
  Report Type: Spontaneous
  Country: IT (occurrence: IT)
  Receive Date: 20200708
  Receipt Date: 20200708
  Transmission Date: 20201103
  Serious: Yes (Other)
  Sender: FDA-Public Use
  Company Number: IT-FRESENIUS KABI-FK202006861

PATIENT
  Age: 31 Year
  Sex: Female

DRUGS (2)
  1. PACLITAXEL (MANUFACTURER UNKNOWN) [Suspect]
     Active Substance: PACLITAXEL
     Indication: CERVIX CARCINOMA STAGE III
     Dosage: 175 MG/MQ) (4 CYCLES)
     Route: 065
  2. CARBOPLATIN. [Suspect]
     Active Substance: CARBOPLATIN
     Indication: CERVIX CARCINOMA STAGE III
     Dosage: AUC 5 (4 CYCLES)
     Route: 065

REACTIONS (2)
  - Maternal exposure during pregnancy [Unknown]
  - Thrombocytopenia [Unknown]
